FAERS Safety Report 12518866 (Version 1)
Quarter: 2016Q2

REPORT INFORMATION
  Report Type: Spontaneous
  Country: US (occurrence: US)
  Receive Date: 20160630
  Receipt Date: 20160630
  Transmission Date: 20160815
  Serious: Yes (Other)
  Sender: FDA-Public Use
  Company Number: US-TEVA-671975ACC

PATIENT
  Weight: 78 kg

DRUGS (1)
  1. PARAGARD T 380A [Suspect]
     Active Substance: COPPER

REACTIONS (3)
  - Discomfort [Unknown]
  - Device breakage [Recovered/Resolved]
  - Device physical property issue [Unknown]
